FAERS Safety Report 5841997-2 (Version None)
Quarter: 2008Q3

REPORT INFORMATION
  Report Type: 
  Country: None (occurrence: None)
  Receive Date: 20080812
  Receipt Date: 20060417
  Transmission Date: 20090109
  Serious: Yes (Congenital Anomaly)
  Sender: FDA-Public Use
  Company Number: US-MERCK-0505USA01948B1

PATIENT
  Age: 0 Day
  Sex: Male
  Weight: 3 kg

DRUGS (11)
  1. SINGULAIR [Suspect]
     Indication: ASTHMA
     Route: 064
     Dates: start: 20000101, end: 20050601
  2. SINGULAIR [Suspect]
     Indication: HYPERSENSITIVITY
     Route: 064
     Dates: start: 20000101, end: 20050601
  3. PREDNISONE [Concomitant]
     Route: 064
     Dates: start: 20020101
  4. ENBREL [Concomitant]
     Route: 064
     Dates: start: 20020201
  5. PULMICORT-100 [Concomitant]
     Route: 064
  6. ALBUTEROL [Concomitant]
     Route: 064
  7. DARVOCET-N 100 [Concomitant]
     Route: 064
  8. ACIPHEX [Concomitant]
     Route: 064
  9. NATAFORT PRENATAL VITAMIN [Concomitant]
     Route: 064
  10. ARAVA [Concomitant]
     Route: 064
  11. [THERAPY UNSPECIFIED] [Concomitant]
     Route: 064

REACTIONS (4)
  - CONGENITAL CYSTIC KIDNEY DISEASE [None]
  - CONGENITAL TONGUE ANOMALY [None]
  - HYDROCELE [None]
  - HYDRONEPHROSIS [None]
